FAERS Safety Report 15168340 (Version 4)
Quarter: 2018Q3

REPORT INFORMATION
  Report Type: Spontaneous
  Country: CN (occurrence: CN)
  Receive Date: 20180719
  Receipt Date: 20180802
  Transmission Date: 20181010
  Serious: Yes (Hospitalization)
  Sender: FDA-Public Use
  Company Number: PHHY2018CN047557

PATIENT
  Age: 52 Year
  Sex: Male

DRUGS (6)
  1. LOTENSIN [Suspect]
     Active Substance: BENAZEPRIL HYDROCHLORIDE
     Indication: BLOOD PRESSURE FLUCTUATION
     Dosage: 10 MG, QD
     Route: 065
  2. AROTINOLOL HCL [Suspect]
     Active Substance: AROTINOLOL HYDROCHLORIDE
     Indication: BLOOD PRESSURE FLUCTUATION
     Dosage: 10 MG, BID
     Route: 065
  3. LOSARTAN POTASSIUM. [Suspect]
     Active Substance: LOSARTAN POTASSIUM
     Indication: BLOOD PRESSURE FLUCTUATION
     Route: 065
  4. DIOVAN [Suspect]
     Active Substance: VALSARTAN
     Indication: HYPERTENSION
     Dosage: 80 MG, QD
     Route: 065
  5. NIFEDIPINE. [Suspect]
     Active Substance: NIFEDIPINE
     Indication: BLOOD PRESSURE FLUCTUATION
     Dosage: 30 MG, UNK
     Route: 065
  6. HYDROCHLOROTHIAZIDE. [Suspect]
     Active Substance: HYDROCHLOROTHIAZIDE
     Indication: BLOOD PRESSURE FLUCTUATION
     Dosage: 1 DF, QD
     Route: 065

REACTIONS (3)
  - Blood pressure increased [Unknown]
  - Microalbuminuria [Unknown]
  - Oedema [Unknown]
